FAERS Safety Report 5904613-7 (Version None)
Quarter: 2008Q3

REPORT INFORMATION
  Report Type: 
  Country: None (occurrence: None)
  Receive Date: 20080909
  Receipt Date: 20071101
  Transmission Date: 20090109
  Serious: Yes (Hospitalization, Other)
  Sender: FDA-Public Use
  Company Number: 163-20785-07101111

PATIENT
  Age: 56 Year
  Sex: Female

DRUGS (4)
  1. THALOMID [Suspect]
     Indication: MULTIPLE MYELOMA
     Dosage: 200 MG, 2 IN 1 D, ORAL
     Route: 048
     Dates: start: 20071004, end: 20071010
  2. ARANESP [Concomitant]
  3. DEXAMETHASONE TAB [Concomitant]
  4. PREVACID [Concomitant]

REACTIONS (1)
  - PARTIAL SEIZURES [None]
